FAERS Safety Report 7663929-7 (Version None)
Quarter: 2011Q3

REPORT INFORMATION
  Report Type: 
  Country: None (occurrence: None)
  Receive Date: 20110805
  Receipt Date: 20100810
  Transmission Date: 20111222
  Serious: No
  Sender: FDA-Public Use
  Company Number: US-ABBOTT-10P-163-0663471-00

PATIENT
  Sex: Male
  Weight: 77.18 kg

DRUGS (4)
  1. LOTREL [Concomitant]
     Indication: HYPERTENSION
  2. COSOPT [Concomitant]
     Indication: GLAUCOMA
     Dosage: EYE DROPS
  3. NIASPAN [Suspect]
     Indication: HIGH DENSITY LIPOPROTEIN DECREASED
     Dosage: EVERY NIGHT
     Dates: start: 20100730
  4. LIPITOR [Concomitant]
     Indication: BLOOD CHOLESTEROL INCREASED

REACTIONS (4)
  - URTICARIA [None]
  - OEDEMA PERIPHERAL [None]
  - PRURITUS [None]
  - LIP SWELLING [None]
